FAERS Safety Report 25830454 (Version 1)
Quarter: 2025Q3

REPORT INFORMATION
  Report Type: Spontaneous
  Country: US (occurrence: US)
  Receive Date: 20250922
  Receipt Date: 20250922
  Transmission Date: 20251020
  Serious: No
  Sender: ROCHE
  Company Number: US-ROCHE-10000383080

PATIENT
  Sex: Male

DRUGS (1)
  1. RITUXAN [Suspect]
     Active Substance: RITUXIMAB
     Indication: Granulomatosis with polyangiitis
     Dosage: STRENGTH: 10 MG/ML?SINGLE DOSE VIAL: 50ML/VIAL
     Route: 042
     Dates: start: 202306

REACTIONS (3)
  - Malaise [Unknown]
  - Pain [Unknown]
  - Fatigue [Unknown]
